FAERS Safety Report 5474448-0 (Version None)
Quarter: 2007Q4

REPORT INFORMATION
  Report Type: 
  Country: None (occurrence: None)
  Receive Date: 20071002
  Receipt Date: 20070920
  Transmission Date: 20080405
  Serious: Yes (Other)
  Sender: FDA-Public Use
  Company Number: FR-AVENTIS-200712733FR

PATIENT
  Age: 64 Year
  Sex: Female
  Weight: 47 kg

DRUGS (4)
  1. NASACORT [Suspect]
     Route: 045
     Dates: start: 20070812
  2. LIPANTHYL [Concomitant]
     Route: 048
  3. LEXOMIL [Concomitant]
     Indication: ANXIETY
     Route: 048
  4. STILNOX                            /00914901/ [Concomitant]
     Indication: SLEEP DISORDER
     Route: 048

REACTIONS (3)
  - CATARACT [None]
  - MEDICATION ERROR [None]
  - VISION BLURRED [None]
